FAERS Safety Report 13990934 (Version 1)
Quarter: 2017Q3

REPORT INFORMATION
  Report Type: Spontaneous
  Country: US (occurrence: US)
  Receive Date: 20170920
  Receipt Date: 20170920
  Transmission Date: 20171128
  Serious: No
  Sender: FDA-Public Use
  Company Number: US-VIFOR (INTERNATIONAL) INC.-VIT-2017-09255

PATIENT
  Sex: Male

DRUGS (2)
  1. VELPHORO [Suspect]
     Active Substance: FERRIC OXYHYDROXIDE
     Dosage: 1 TABLET DAILY IF MEALS WERE LIGHT.
     Route: 048
  2. VELPHORO [Suspect]
     Active Substance: FERRIC OXYHYDROXIDE
     Indication: PRODUCT USED FOR UNKNOWN INDICATION
     Dosage: 1 TABLETS THREE TIMES A DAY WITH MEALS.
     Route: 048

REACTIONS (1)
  - Constipation [Not Recovered/Not Resolved]

NARRATIVE: CASE EVENT DATE: 20170829
